FAERS Safety Report 14547799 (Version 1)
Quarter: 2018Q1

REPORT INFORMATION
  Report Type: Spontaneous
  Country: CA (occurrence: CA)
  Receive Date: 20180219
  Receipt Date: 20180219
  Transmission Date: 20180509
  Serious: Yes (Other)
  Sender: FDA-Public Use
  Company Number: CA-TEVA-2017-CA-836651

PATIENT

DRUGS (1)
  1. TREANDA [Suspect]
     Active Substance: BENDAMUSTINE HYDROCHLORIDE
     Indication: CHRONIC LYMPHOCYTIC LEUKAEMIA
     Dosage: PLAN FOR 6 CYCLES, ONLY GOT 3 CYCLES - LAST CYCLE NOVEMBER 23
     Route: 042
     Dates: start: 20170928

REACTIONS (9)
  - Extravasation [Unknown]
  - Cellulitis [Unknown]
  - Feeling hot [Unknown]
  - Peripheral swelling [Not Recovered/Not Resolved]
  - Chronic lymphocytic leukaemia [Unknown]
  - Eschar [Unknown]
  - Erythema [Unknown]
  - Pain in extremity [Not Recovered/Not Resolved]
  - Oedema [Unknown]
